FAERS Safety Report 8357898-4 (Version None)
Quarter: 2012Q2

REPORT INFORMATION
  Report Type: 
  Country: None (occurrence: None)
  Receive Date: 20120514
  Receipt Date: 20120509
  Transmission Date: 20120825
  Serious: Yes (Death, Hospitalization, Other)
  Sender: FDA-Public Use
  Company Number: US-AMGEN-USASP2010006666

PATIENT
  Age: 68 Year
  Sex: Female
  Weight: 89.796 kg

DRUGS (2)
  1. CORTICOSTEROID NOS [Concomitant]
     Dosage: UNK
     Dates: start: 19951221
  2. NPLATE [Suspect]
     Indication: IDIOPATHIC THROMBOCYTOPENIC PURPURA
     Dosage: 7 MUG/KG, UNK
     Route: 058
     Dates: start: 20091105, end: 20100329

REACTIONS (32)
  - ECHOCARDIOGRAM ABNORMAL [None]
  - WHITE BLOOD CELL COUNT ABNORMAL [None]
  - LETHARGY [None]
  - BLOOD CREATININE ABNORMAL [None]
  - INSOMNIA [None]
  - CHILLS [None]
  - DYSPHONIA [None]
  - SUPRAVENTRICULAR TACHYCARDIA [None]
  - BUNDLE BRANCH BLOCK LEFT [None]
  - SINUS BRADYCARDIA [None]
  - THROMBOCYTOPENIA [None]
  - DISCOMFORT [None]
  - MYALGIA [None]
  - EJECTION FRACTION ABNORMAL [None]
  - GOITRE [None]
  - RENAL FAILURE ACUTE [None]
  - ATRIAL FLUTTER [None]
  - BLOOD UREA ABNORMAL [None]
  - OSTEOARTHRITIS [None]
  - HYPERLIPIDAEMIA [None]
  - CARDIO-RESPIRATORY ARREST [None]
  - SINUS TACHYCARDIA [None]
  - RENAL TUBULAR NECROSIS [None]
  - ENDOTRACHEAL INTUBATION [None]
  - CARDIOMEGALY [None]
  - ASTHENIA [None]
  - ASPARTATE AMINOTRANSFERASE ABNORMAL [None]
  - SEPTIC SHOCK [None]
  - HYPOTENSION [None]
  - CONFUSIONAL STATE [None]
  - MYDRIASIS [None]
  - HYPERTENSION [None]
